FAERS Safety Report 23097686 (Version 1)
Quarter: 2023Q4

REPORT INFORMATION
  Report Type: Spontaneous
  Country: CN (occurrence: CN)
  Receive Date: 20231023
  Receipt Date: 20231023
  Transmission Date: 20240110
  Serious: Yes (Hospitalization)
  Sender: FDA-Public Use
  Company Number: CN-STRIDES ARCOLAB LIMITED-2023SP015707

PATIENT
  Age: 71 Year
  Sex: Male
  Weight: 73 kg

DRUGS (2)
  1. ETOPOSIDE [Suspect]
     Active Substance: ETOPOSIDE
     Indication: Small cell lung cancer
     Dosage: 100 MG/M2, RECEIVED FROM DAY 1 TO DAY 3
     Route: 065
     Dates: start: 20220420, end: 20220422
  2. NEDAPLATIN [Suspect]
     Active Substance: NEDAPLATIN
     Indication: Small cell lung cancer
     Dosage: 80 MG/M2, RECEIVED ON DAY 1
     Route: 065
     Dates: start: 20220420, end: 20220422

REACTIONS (2)
  - Rhabdomyolysis [Recovered/Resolved]
  - Acute kidney injury [Unknown]
